FAERS Safety Report 5592306-8 (Version None)
Quarter: 2008Q1

REPORT INFORMATION
  Report Type: 
  Country: None (occurrence: None)
  Receive Date: 20080115
  Receipt Date: 20080115
  Transmission Date: 20080703
  Serious: Yes (Hospitalization)
  Sender: FDA-Public Use
  Company Number: US-GENENTECH-251207

PATIENT
  Age: 68 Year
  Sex: Male

DRUGS (2)
  1. RITUXAN [Suspect]
     Indication: NON-HODGKIN'S LYMPHOMA
  2. MEDICATION (UNK INGREDIENT) [Concomitant]
     Indication: DIABETES MELLITUS

REACTIONS (1)
  - NOCARDIOSIS [None]
